FAERS Safety Report 9496209 (Version 1)
Quarter: 2013Q3

REPORT INFORMATION
  Report Type: Spontaneous
  Country: BR (occurrence: None)
  Receive Date: 20130829
  Receipt Date: 20130829
  Transmission Date: 20140515
  Serious: Yes (Hospitalization)
  Sender: FDA-Public Use
  Company Number: DSJ-2013-14520

PATIENT
  Age: 80 Year
  Sex: Female

DRUGS (2)
  1. BENICAR HCT(HYDROCHLOROTHIAZIDE, OLMESARTAN MEDOXOMIL)(TABLET)(HYDROCHLOROTHIAZIDE, OLMESARTAN MEDOXOMIL) [Suspect]
     Indication: HYPERTENSION
     Dosage: 40/25MG (1 IN 1 D, PER ORAL
     Route: 048
     Dates: start: 2011
  2. LEVOTHYROXINE SODIUM [Suspect]

REACTIONS (7)
  - Pain in extremity [None]
  - Headache [None]
  - Drug ineffective [None]
  - Blood pressure increased [None]
  - Gait disturbance [None]
  - Depression [None]
  - Arthritis [None]
